FAERS Safety Report 4906024-X (Version None)
Quarter: 2006Q1

REPORT INFORMATION
  Report Type: 
  Country: None (occurrence: None)
  Receive Date: 20060206
  Receipt Date: 20060127
  Transmission Date: 20060701
  Serious: Yes (Death, Hospitalization)
  Sender: FDA-Public Use
  Company Number: PAR_0181_2005

PATIENT
  Age: 80 Year
  Sex: Female
  Weight: 40.3701 kg

DRUGS (1)
  1. MEGESTROL ACETATE [Suspect]
     Indication: APPETITE DISORDER
     Dosage: 2 TSP BID PO
     Route: 048
     Dates: start: 20050308, end: 20050405

REACTIONS (11)
  - ABNORMAL BEHAVIOUR [None]
  - ANGER [None]
  - ASTHENIA [None]
  - BALANCE DISORDER [None]
  - DIZZINESS [None]
  - FALL [None]
  - HIP FRACTURE [None]
  - HUMERUS FRACTURE [None]
  - IMPATIENCE [None]
  - IRRITABILITY [None]
  - JOINT DISLOCATION [None]
